FAERS Safety Report 7549002-7 (Version None)
Quarter: 2011Q2

REPORT INFORMATION
  Report Type: 
  Country: None (occurrence: None)
  Receive Date: 20110608
  Receipt Date: 20110601
  Transmission Date: 20111010
  Serious: Yes (Other)
  Sender: FDA-Public Use
  Company Number: 2011SP025545

PATIENT
  Age: 28 Year
  Sex: Female
  Weight: 86.4 kg

DRUGS (2)
  1. NEXPLANON [Suspect]
     Indication: CONTRACEPTION
     Dosage: 68 MG, SBDE
     Route: 059
     Dates: start: 20110330, end: 20110420
  2. NEXPLANON [Suspect]

REACTIONS (2)
  - CHOLESTASIS [None]
  - PRURITUS [None]
